FAERS Safety Report 14618649 (Version 2)
Quarter: 2018Q2

REPORT INFORMATION
  Report Type: Spontaneous
  Country: JP (occurrence: JP)
  Receive Date: 20180309
  Receipt Date: 20180410
  Transmission Date: 20180711
  Serious: Yes (Other)
  Sender: FDA-Public Use
  Company Number: JP-JNJFOC-20180305212

PATIENT
  Age: 55 Year
  Sex: Female
  Weight: 52 kg

DRUGS (4)
  1. LYRICA [Suspect]
     Active Substance: PREGABALIN
     Indication: PAIN
     Route: 048
  2. NAPHAZOLINE [Concomitant]
     Active Substance: NAPHAZOLINE\NAPHAZOLINE HYDROCHLORIDE
     Route: 065
  3. EMPERACIN [Concomitant]
     Route: 048
  4. TRAMCET [Suspect]
     Active Substance: ACETAMINOPHEN\TRAMADOL
     Indication: PAIN
     Route: 048
     Dates: start: 20171221, end: 20171221

REACTIONS (1)
  - Depressed level of consciousness [Recovered/Resolved]

NARRATIVE: CASE EVENT DATE: 20171221
